FAERS Safety Report 20508437 (Version 1)
Quarter: 2022Q1

REPORT INFORMATION
  Report Type: Report from Study
  Country: IT (occurrence: IT)
  Receive Date: 20220223
  Receipt Date: 20220223
  Transmission Date: 20220423
  Serious: Yes (Other)
  Sender: FDA-Public Use
  Company Number: IT-TEVA-2022-IT-2009355

PATIENT

DRUGS (3)
  1. FLUDARABINE [Suspect]
     Active Substance: FLUDARABINE PHOSPHATE
     Indication: Bone marrow conditioning regimen
     Dosage: 40 MG/M2 DAILY; FOR 4 DAYS (FROM DAY -5 TO DAY -2)
     Route: 065
  2. BUSULFAN [Suspect]
     Active Substance: BUSULFAN
     Indication: Bone marrow conditioning regimen
     Dosage: FROM DAY -5 TO DAY -2, AND ON DAY -5, RECEIVED ONCE-DAILY IV BUSULFAN GIVEN OVER 3 HOURS; TARGETI...
     Route: 042
  3. THIOTEPA [Suspect]
     Active Substance: THIOTEPA
     Indication: Bone marrow conditioning regimen
     Dosage: ON DAY -6
     Route: 065

REACTIONS (4)
  - Nephropathy toxic [Unknown]
  - Septic shock [Unknown]
  - BK virus infection [Unknown]
  - Urinary tract infection [Unknown]
